FAERS Safety Report 10400384 (Version 1)
Quarter: 2014Q3

REPORT INFORMATION
  Report Type: Spontaneous
  Country: US (occurrence: US)
  Receive Date: 20140821
  Receipt Date: 20140821
  Transmission Date: 20150326
  Serious: No
  Sender: FDA-Public Use
  Company Number: US-ASTRAZENECA-2013SE78916

PATIENT
  Age: 32 Year
  Sex: Female
  Weight: 96.2 kg

DRUGS (6)
  1. SYMBICORT [Suspect]
     Active Substance: BUDESONIDE\FORMOTEROL FUMARATE DIHYDRATE
     Indication: ASTHMA
     Dosage: 160MCG/4.5, 2 PUFFS PRN
     Route: 055
     Dates: start: 201309
  2. PRILOSEC [Suspect]
     Active Substance: OMEPRAZOLE MAGNESIUM
     Indication: GASTROOESOPHAGEAL REFLUX DISEASE
     Route: 048
     Dates: start: 201309
  3. AUGMENTIN [Concomitant]
     Active Substance: AMOXICILLIN\CLAVULANATE POTASSIUM
     Indication: INFECTION
     Dosage: 875-125 BID
     Dates: start: 20130922
  4. PREDNISONE. [Concomitant]
     Active Substance: PREDNISONE
     Indication: INFECTION
     Dosage: 20MG 4 TABS DAILY
     Dates: start: 20131024, end: 20131024
  5. TESSALON [Concomitant]
     Active Substance: BENZONATATE
     Dosage: UNKNOWN NR
     Dates: start: 20131022, end: 20131024
  6. PROZAC [Concomitant]
     Active Substance: FLUOXETINE HYDROCHLORIDE
     Indication: DEPRESSION
     Dates: start: 201309

REACTIONS (4)
  - Chest discomfort [Unknown]
  - Intentional product misuse [Unknown]
  - Sinusitis [Unknown]
  - Ear pain [Unknown]

NARRATIVE: CASE EVENT DATE: 2013
